FAERS Safety Report 13924110 (Version 1)
Quarter: 2017Q3

REPORT INFORMATION
  Report Type: Spontaneous
  Country: FR (occurrence: FR)
  Receive Date: 20170831
  Receipt Date: 20170831
  Transmission Date: 20171127
  Serious: Yes (Hospitalization)
  Sender: FDA-Public Use
  Company Number: FR-ACCORD-057817

PATIENT
  Age: 18 Year
  Sex: Female

DRUGS (13)
  1. ZELITREX [Concomitant]
     Active Substance: VALACYCLOVIR HYDROCHLORIDE
  2. CALCIDOSE VITAMINE D3 [Concomitant]
     Active Substance: CALCIUM\CHOLECALCIFEROL
  3. MESNA EG [Suspect]
     Active Substance: MESNA
     Indication: DETOXIFICATION
     Dosage: IN A SINGLE INTAKE
     Route: 042
     Dates: start: 20170721
  4. BACTRIM [Concomitant]
     Active Substance: SULFAMETHOXAZOLE\TRIMETHOPRIM
  5. PANTOPRAZOLE [Concomitant]
     Active Substance: PANTOPRAZOLE
  6. CORTANCYL [Concomitant]
     Active Substance: PREDNISONE
  7. CALCIPARINE [Concomitant]
     Active Substance: HEPARIN CALCIUM
  8. ENDOXAN [Suspect]
     Active Substance: CYCLOPHOSPHAMIDE
     Indication: SYSTEMIC LUPUS ERYTHEMATOSUS
     Route: 042
     Dates: start: 20170721
  9. AMLODIPINE [Concomitant]
     Active Substance: AMLODIPINE BESYLATE
  10. ONDANSETRON ACCORD [Suspect]
     Active Substance: ONDANSETRON
     Indication: ANTIEMETIC SUPPORTIVE CARE
     Dosage: IN A SINGLE INTAKE
     Route: 042
     Dates: start: 20170721
  11. COUMADINE [Concomitant]
     Active Substance: WARFARIN SODIUM
  12. PERINDOPRIL/PERINDOPRIL ERBUMINE [Concomitant]
  13. SPECIAFOLDINE [Concomitant]
     Active Substance: FOLIC ACID

REACTIONS (4)
  - Rash morbilliform [Recovered/Resolved]
  - Hyperthermia [Recovered/Resolved]
  - Face oedema [Recovered/Resolved]
  - Oedema peripheral [Recovered/Resolved]

NARRATIVE: CASE EVENT DATE: 20170721
